FAERS Safety Report 6316650-1 (Version None)
Quarter: 2009Q3

REPORT INFORMATION
  Report Type: 
  Country: None (occurrence: None)
  Receive Date: 20090820
  Receipt Date: 20090814
  Transmission Date: 20100115
  Serious: Yes (Hospitalization)
  Sender: FDA-Public Use
  Company Number: CZ-PFIZER INC-2009184335

PATIENT

DRUGS (1)
  1. DEPO-PROVERA [Suspect]
     Route: 030

REACTIONS (1)
  - EMBOLISM [None]
